FAERS Safety Report 7079305-4 (Version None)
Quarter: 2010Q4

REPORT INFORMATION
  Report Type: 
  Country: None (occurrence: None)
  Receive Date: 20101102
  Receipt Date: 20101022
  Transmission Date: 20110411
  Serious: Yes (Hospitalization)
  Sender: FDA-Public Use
  Company Number: GB-JNJFOC-20101006865

PATIENT
  Age: 33 Year
  Sex: Female
  Weight: 55 kg

DRUGS (2)
  1. INFLIXIMAB, RECOMBINANT [Suspect]
     Indication: CROHN'S DISEASE
     Route: 042
  2. INFLIXIMAB, RECOMBINANT [Suspect]
     Dosage: 4 INFUSIONS ON UNSPECIFIED DATES
     Route: 042

REACTIONS (7)
  - DYSPNOEA [None]
  - FEELING HOT [None]
  - HEADACHE [None]
  - HEART RATE INCREASED [None]
  - INFUSION RELATED REACTION [None]
  - MALAISE [None]
  - PALPITATIONS [None]
